FAERS Safety Report 5626034-7 (Version None)
Quarter: 2008Q1

REPORT INFORMATION
  Report Type: 
  Country: None (occurrence: None)
  Receive Date: 20080214
  Receipt Date: 20080131
  Transmission Date: 20080703
  Serious: Yes (Death, Hospitalization)
  Sender: FDA-Public Use
  Company Number: MX-GENENTECH-253516

PATIENT
  Sex: Female
  Weight: 55 kg

DRUGS (3)
  1. TRASTUZUMAB [Suspect]
     Indication: GASTRIC CANCER
     Dosage: 330 MG, Q3W
     Route: 042
     Dates: start: 20071012
  2. CAPECITABINE [Suspect]
     Indication: GASTRIC CANCER
     Dosage: 3300 MG, D1-14/Q3W
     Route: 048
     Dates: start: 20071012
  3. CISPLATIN [Suspect]
     Indication: GASTRIC CANCER
     Dosage: 130 MG, Q3W
     Route: 042
     Dates: start: 20071012

REACTIONS (1)
  - GASTRITIS [None]
